FAERS Safety Report 5155760-1 (Version None)
Quarter: 2006Q4

REPORT INFORMATION
  Report Type: 
  Country: None (occurrence: None)
  Receive Date: 20061113
  Receipt Date: 20061101
  Transmission Date: 20070319
  Serious: Yes (Other)
  Sender: FDA-Public Use
  Company Number: 163-20785-06030070

PATIENT
  Age: 69 Year
  Sex: Male

DRUGS (3)
  1. THALOMID [Suspect]
     Indication: MULTIPLE MYELOMA
     Dosage: 50 MG, 1 IN 1 D, ORAL
     Route: 048
     Dates: start: 20051201, end: 20060119
  2. DECADRON [Concomitant]
  3. PAMIDRONATE DISODIUM [Concomitant]

REACTIONS (5)
  - HEPATITIS B [None]
  - HYPOAESTHESIA [None]
  - MUSCULOSKELETAL PAIN [None]
  - TRANSAMINASES INCREASED [None]
  - UNEVALUABLE EVENT [None]
